FAERS Safety Report 16756840 (Version 1)
Quarter: 2019Q3

REPORT INFORMATION
  Report Type: Spontaneous
  Country: CA (occurrence: CA)
  Receive Date: 20190829
  Receipt Date: 20190829
  Transmission Date: 20191005
  Serious: Yes (Other)
  Sender: FDA-Public Use
  Company Number: CA-TEVA-2019-CA-1099461

PATIENT
  Age: 3 Year
  Sex: Male

DRUGS (1)
  1. MORPHINE SULFATE. [Suspect]
     Active Substance: MORPHINE SULFATE
     Indication: PAIN
     Route: 065

REACTIONS (5)
  - Off label use [Recovered/Resolved]
  - Overdose [Recovered/Resolved]
  - Product dispensing error [Recovered/Resolved]
  - Respiration abnormal [Recovered/Resolved]
  - Unresponsive to stimuli [Recovered/Resolved]
